FAERS Safety Report 5456558-7 (Version None)
Quarter: 2007Q3

REPORT INFORMATION
  Report Type: 
  Country: None (occurrence: None)
  Receive Date: 20070918
  Receipt Date: 20070905
  Transmission Date: 20080115
  Serious: Yes (Other)
  Sender: FDA-Public Use
  Company Number: B0487373A

PATIENT

DRUGS (3)
  1. TOPOTECAN [Suspect]
     Route: 042
  2. FILGRASTIM [Concomitant]
     Route: 058
  3. PENTAMIDINE ISETHIONATE [Concomitant]
     Route: 065

REACTIONS (2)
  - CEREBROVASCULAR ACCIDENT [None]
  - INTRACRANIAL TUMOUR HAEMORRHAGE [None]
